APPROVED DRUG PRODUCT: ANCEF IN PLASTIC CONTAINER
Active Ingredient: CEFAZOLIN SODIUM
Strength: EQ 10MG BASE/ML
Dosage Form/Route: INJECTABLE;INJECTION
Application: A063002 | Product #001
Applicant: BAXTER HEALTHCARE CORP
Approved: Mar 28, 1991 | RLD: No | RS: No | Type: DISCN